FAERS Safety Report 8856729 (Version 1)
Quarter: 2012Q4

REPORT INFORMATION
  Report Type: Spontaneous
  Country: GB (occurrence: None)
  Receive Date: 20121019
  Receipt Date: 20121019
  Transmission Date: 20130627
  Serious: Yes (Other)
  Sender: FDA-Public Use
  Company Number: 1449159

PATIENT
  Age: 63 Year
  Sex: Male
  Weight: 35.83 kg

DRUGS (5)
  1. CALCIUM FOLINATE [Suspect]
     Indication: COLORECTAL CANCER METASTATIC
  2. IRINOTECAN HYDROCHLORIDE [Suspect]
     Indication: METASTATIC COLORECTAL CANCER
  3. FLUOROURACIL [Suspect]
     Indication: METASTATIC COLORECTAL CANCER
  4. ELOXATIN [Suspect]
     Indication: METASTATIC COLORECTAL CANCER
     Dosage: 130 unit, intravenous
     Route: 042
     Dates: start: 20080827
  5. CAPECITABINE [Concomitant]

REACTIONS (2)
  - Paraesthesia [None]
  - Constipation [None]
